FAERS Safety Report 11336372 (Version 1)
Quarter: 2015Q3

REPORT INFORMATION
  Report Type: Spontaneous
  Country: US (occurrence: US)
  Receive Date: 20150804
  Receipt Date: 20150804
  Transmission Date: 20151125
  Serious: No
  Sender: FDA-Public Use
  Company Number: US-JNJFOC-20150718774

PATIENT
  Sex: Male
  Weight: 70.31 kg

DRUGS (4)
  1. DURAGESIC [Suspect]
     Active Substance: FENTANYL
     Indication: BACK PAIN
     Dosage: 100UG/HR ON ONE DAY AND 50UG/HR ON ANOTHER DAY
     Route: 062
     Dates: start: 2002, end: 2003
  2. PHOSPHATE [Concomitant]
     Active Substance: UNSPECIFIED INGREDIENT
     Indication: SPONDYLITIS
     Route: 065
     Dates: start: 2002
  3. TIZANIDINE. [Concomitant]
     Active Substance: TIZANIDINE
     Indication: SPONDYLITIS
     Route: 065
  4. LORTAB [Concomitant]
     Active Substance: ACETAMINOPHEN\HYDROCODONE BITARTRATE
     Route: 065

REACTIONS (3)
  - Somnolence [Recovered/Resolved]
  - Inappropriate schedule of drug administration [Unknown]
  - Hypersomnia [Recovered/Resolved]

NARRATIVE: CASE EVENT DATE: 2002
